FAERS Safety Report 5346089-7 (Version None)
Quarter: 2007Q2

REPORT INFORMATION
  Report Type: 
  Country: None (occurrence: None)
  Receive Date: 20070605
  Receipt Date: 20070523
  Transmission Date: 20071010
  Serious: Yes (Hospitalization, Other)
  Sender: FDA-Public Use
  Company Number: US-ROCHE-471445

PATIENT
  Age: 46 Year
  Sex: Female
  Weight: 60.3 kg

DRUGS (2)
  1. TAMIFLU [Suspect]
     Indication: INFLUENZA
     Route: 048
     Dates: start: 20061102
  2. ANTIBIOTIC NOS [Concomitant]

REACTIONS (19)
  - ABNORMAL BEHAVIOUR [None]
  - AMNESIA [None]
  - ARRHYTHMIA [None]
  - BLOOD CREATINE PHOSPHOKINASE INCREASED [None]
  - CARDIAC ENZYMES INCREASED [None]
  - CONFUSIONAL STATE [None]
  - DELIRIUM [None]
  - GRAND MAL CONVULSION [None]
  - HALLUCINATION [None]
  - HEPATIC PAIN [None]
  - HEPATITIS [None]
  - HEPATITIS ALCOHOLIC [None]
  - HYPERSENSITIVITY [None]
  - LIVER DISORDER [None]
  - LIVER FUNCTION TEST ABNORMAL [None]
  - LYMPHADENOPATHY [None]
  - MENTAL DISORDER [None]
  - METABOLIC DISORDER [None]
  - SKIN DISORDER [None]
